FAERS Safety Report 8982446 (Version 1)
Quarter: 2012Q4

REPORT INFORMATION
  Report Type: 
  Country: US (occurrence: US)
  Receive Date: 20121212
  Receipt Date: 20121212
  Transmission Date: 20130627
  Serious: Yes (Death)
  Sender: FDA-Public Use
  Company Number: US-ASTELLAS-1119295

PATIENT
  Sex: Female

DRUGS (4)
  1. TARCEVA [Suspect]
     Indication: MALIGNANT RESPIRATORY TRACT NEOPLASM
     Route: 048
     Dates: start: 20071024
  2. TARCEVA [Suspect]
     Route: 065
  3. TARCEVA [Suspect]
     Dosage: decreased dose
     Route: 065
     Dates: start: 20071227
  4. TARCEVA [Suspect]
     Dosage: dose reduced
     Route: 065
     Dates: start: 20071228

REACTIONS (2)
  - Disease progression [Fatal]
  - Diarrhoea [Unknown]
